FAERS Safety Report 9482795 (Version 1)
Quarter: 2013Q3

REPORT INFORMATION
  Report Type: Spontaneous
  Country: IT (occurrence: IT)
  Receive Date: 20130828
  Receipt Date: 20130828
  Transmission Date: 20140515
  Serious: Yes (Disabling, Congenital Anomaly, Other)
  Sender: FDA-Public Use
  Company Number: IT-ROXANE LABORATORIES, INC.-2013-RO-01433RO

PATIENT
  Sex: Female

DRUGS (1)
  1. METHADONE [Suspect]
     Indication: FOETAL EXPOSURE DURING PREGNANCY

REACTIONS (3)
  - Congenital nystagmus [Unknown]
  - Drug withdrawal syndrome neonatal [Unknown]
  - Visual acuity reduced [Not Recovered/Not Resolved]
